FAERS Safety Report 13561385 (Version 2)
Quarter: 2017Q2

REPORT INFORMATION
  Report Type: Report from Study
  Country: US (occurrence: US)
  Receive Date: 20170518
  Receipt Date: 20170627
  Transmission Date: 20170830
  Serious: Yes (Death, Hospitalization, Other)
  Sender: FDA-Public Use
  Company Number: US-EMD SERONO-E2B_80068410

PATIENT
  Age: 72 Year
  Sex: Female
  Weight: 59 kg

DRUGS (1)
  1. REBIF [Suspect]
     Active Substance: INTERFERON BETA-1A
     Indication: MULTIPLE SCLEROSIS
     Route: 058
     Dates: start: 20160616

REACTIONS (4)
  - Electrolyte imbalance [Unknown]
  - Dysphagia [Unknown]
  - Pneumonia aspiration [Fatal]
  - Aspiration [Unknown]

NARRATIVE: CASE EVENT DATE: 20170421
